FAERS Safety Report 19068297 (Version 1)
Quarter: 2021Q1

REPORT INFORMATION
  Report Type: Spontaneous
  Country: US (occurrence: US)
  Receive Date: 20210329
  Receipt Date: 20210329
  Transmission Date: 20210420
  Serious: Yes (Hospitalization, Other)
  Sender: FDA-Public Use
  Company Number: US-FRESENIUS KABI-FK202103035

PATIENT
  Sex: Male

DRUGS (3)
  1. FLUOROURACIL (MANUFACTURER UNKNOWN) [Suspect]
     Active Substance: FLUOROURACIL
     Indication: LYMPHOMA
     Dosage: 2 TREATMENTS OF CHEMOTHERAPY (FLUOROURACIL, LEUCOVORIN CALCIUM AND OXALIPLATIN)
     Route: 065
  2. LEUCOVORIN CALCIUM (MANUFACTURER UNKNOWN) [Suspect]
     Active Substance: LEUCOVORIN CALCIUM
     Indication: LYMPHOMA
     Dosage: 2 TREATMENTS OF CHEMOTHERAPY (FLUOROURACIL, LEUCOVORIN CALCIUM AND OXALIPLATIN)
     Route: 065
  3. OXALIPLATIN (MANUFACTURER UNKNOWN) [Suspect]
     Active Substance: OXALIPLATIN
     Indication: LYMPHOMA
     Dosage: 2 TREATMENTS OF CHEMOTHERAPY (FLUOROURACIL, LEUCOVORIN CALCIUM AND OXALIPLATIN)
     Route: 065

REACTIONS (1)
  - Clostridium difficile infection [Unknown]
